FAERS Safety Report 7369389-8 (Version None)
Quarter: 2011Q1

REPORT INFORMATION
  Report Type: 
  Country: None (occurrence: None)
  Receive Date: 20110321
  Receipt Date: 20110321
  Transmission Date: 20110831
  Serious: Yes (Other)
  Sender: FDA-Public Use
  Company Number: None

PATIENT
  Age: 21 Year
  Sex: Female
  Weight: 72.5755 kg

DRUGS (1)
  1. DEPO-PROVERA [Suspect]

REACTIONS (2)
  - RECTAL HAEMORRHAGE [None]
  - MUSCLE SPASMS [None]
